FAERS Safety Report 11370338 (Version 1)
Quarter: 2015Q3

REPORT INFORMATION
  Report Type: Spontaneous
  Country: CN (occurrence: CN)
  Receive Date: 20150812
  Receipt Date: 20150812
  Transmission Date: 20151125
  Serious: Yes (Death, Other)
  Sender: FDA-Public Use
  Company Number: CN-PFIZER INC-2014187815

PATIENT
  Age: 60 Year
  Sex: Male

DRUGS (1)
  1. SUTENT [Suspect]
     Active Substance: SUNITINIB MALATE
     Indication: GASTROINTESTINAL STROMAL TUMOUR
     Dosage: UNK

REACTIONS (10)
  - Cachexia [Unknown]
  - Peripheral swelling [Unknown]
  - Disease progression [Unknown]
  - Gastrointestinal stromal tumour [Unknown]
  - Asthenia [Unknown]
  - Gastrointestinal disorder [Unknown]
  - Death [Fatal]
  - Pain [Unknown]
  - Hypertension [Unknown]
  - Pulmonary mycosis [Unknown]

NARRATIVE: CASE EVENT DATE: 20150713
